FAERS Safety Report 20909595 (Version 2)
Quarter: 2022Q2

REPORT INFORMATION
  Report Type: Other
  Country: GR (occurrence: GR)
  Receive Date: 20220603
  Receipt Date: 20220617
  Transmission Date: 20220721
  Serious: Yes (Hospitalization, Other)
  Sender: FDA-Public Use
  Company Number: GR-AMGEN-GRCSP2022081782

PATIENT
  Age: 63 Year
  Sex: Female

DRUGS (2)
  1. BEVACIZUMAB [Suspect]
     Active Substance: BEVACIZUMAB
     Indication: Antiangiogenic therapy
     Route: 065
  2. BEVACIZUMAB [Suspect]
     Active Substance: BEVACIZUMAB
     Indication: Antiangiogenic therapy
     Dosage: 3 INTRAVITREAL ANTI-VASCULAR ENDOTHELIAL GROWTH FACTOR INFUSIONS ON THE LEFT EYE
     Route: 050

REACTIONS (8)
  - Epiretinal membrane [Unknown]
  - Condition aggravated [Unknown]
  - Macular hole [Unknown]
  - Visual impairment [Recovering/Resolving]
  - Off label use [Unknown]
  - Macular detachment [Unknown]
  - Metamorphopsia [Unknown]
  - Vitreoretinal traction syndrome [Unknown]
